FAERS Safety Report 25362563 (Version 1)
Quarter: 2025Q2

REPORT INFORMATION
  Report Type: Spontaneous
  Country: US (occurrence: None)
  Receive Date: 20250523
  Receipt Date: 20250523
  Transmission Date: 20250717
  Serious: No
  Sender: FDA-CTU
  Company Number: None

PATIENT
  Age: 80 Year
  Sex: Male

DRUGS (1)
  1. LENALIDOMIDE [Suspect]
     Active Substance: LENALIDOMIDE
     Indication: Diffuse large B-cell lymphoma
     Dosage: FREQUENCY : DAILY;?
     Route: 048
     Dates: start: 20241031, end: 20250430

REACTIONS (5)
  - Therapy interrupted [None]
  - General physical health deterioration [None]
  - Fatigue [None]
  - Weight decreased [None]
  - Cognitive disorder [None]

NARRATIVE: CASE EVENT DATE: 20250430
